FAERS Safety Report 4906922-7 (Version None)
Quarter: 2006Q1

REPORT INFORMATION
  Report Type: 
  Country: None (occurrence: None)
  Receive Date: 20060113
  Receipt Date: 20041213
  Transmission Date: 20060701
  Serious: Yes (Hospitalization)
  Sender: FDA-Public Use
  Company Number: HQWYE958114DEC04

PATIENT
  Age: 53 Year
  Sex: Female
  Weight: 65.83 kg

DRUGS (1)
  1. PREMPRO [Suspect]
     Indication: HORMONE REPLACEMENT THERAPY
     Dosage: 0.625 MG/1.5 MG DAILY,
     Dates: start: 20010101

REACTIONS (2)
  - PAIN IN EXTREMITY [None]
  - THROMBOSIS [None]
